FAERS Safety Report 17837388 (Version 2)
Quarter: 2020Q3

REPORT INFORMATION
  Report Type: Spontaneous
  Country: FR (occurrence: FR)
  Receive Date: 20200529
  Receipt Date: 20200702
  Transmission Date: 20201103
  Serious: Yes (Other)
  Sender: FDA-Public Use
  Company Number: FR-ROCHE-2605203

PATIENT
  Age: 42 Year
  Sex: Male
  Weight: 70 kg

DRUGS (3)
  1. ROACTEMRA [Suspect]
     Active Substance: TOCILIZUMAB
     Indication: CORONAVIRUS INFECTION
     Route: 042
     Dates: start: 20200327, end: 20200327
  2. TAZOCILLINE [Suspect]
     Active Substance: PIPERACILLIN SODIUM\TAZOBACTAM SODIUM
     Indication: CORONAVIRUS INFECTION
     Route: 042
     Dates: start: 20200327, end: 20200402
  3. LEVOFLOXACINE [LEVOFLOXACIN] [Suspect]
     Active Substance: LEVOFLOXACIN
     Indication: CORONAVIRUS INFECTION
     Route: 048
     Dates: start: 20200324, end: 20200330

REACTIONS (1)
  - Hepatocellular injury [Recovering/Resolving]

NARRATIVE: CASE EVENT DATE: 20200401
